FAERS Safety Report 4430176-1 (Version None)
Quarter: 2004Q3

REPORT INFORMATION
  Report Type: 
  Country: None (occurrence: None)
  Receive Date: 20040817
  Receipt Date: 20040804
  Transmission Date: 20050211
  Serious: Yes (Life-Threatening)
  Sender: FDA-Public Use
  Company Number: 04H-144-0269957-00

PATIENT
  Age: 64 Year
  Sex: Female

DRUGS (4)
  1. HEPARIN SODIUM INJECTION (HEPARIN SODIUM) (HEPAIRN SODIUM) [Suspect]
     Indication: ANTICOAGULANT THERAPY
     Dosage: 5 MG/KG/DAY, EXTRA-VENOUSLY
  2. DICLOFENAC [Concomitant]
  3. SERUM THERAPY [Concomitant]
  4. RED BLOOD CELLS [Concomitant]

REACTIONS (3)
  - HAEMATOMA [None]
  - HYPOVOLAEMIC SHOCK [None]
  - INFLAMMATION [None]
